FAERS Safety Report 4961034-1 (Version None)
Quarter: 2006Q1

REPORT INFORMATION
  Report Type: 
  Country: None (occurrence: None)
  Receive Date: 20060328
  Receipt Date: 20060321
  Transmission Date: 20060701
  Serious: Yes (Hospitalization)
  Sender: FDA-Public Use
  Company Number: A044-002-005985

PATIENT
  Age: 81 Year
  Sex: Female

DRUGS (8)
  1. ARICEPT [Suspect]
     Indication: DEMENTIA ALZHEIMER'S TYPE
     Dosage: 5 MG, 1 IN 1 D, ORAL
     Route: 048
     Dates: end: 20060201
  2. HYTACAND (BLOPRESS PLUS) [Concomitant]
  3. ZANIDIP (LERCANIDIPINE HYDROCHLORIDE) [Concomitant]
  4. ALLOPURINOL [Concomitant]
  5. PRAZEPAM [Concomitant]
  6. PRAZOSIN HCL [Concomitant]
  7. HYDROCHLOROTHIAZIDE [Concomitant]
  8. FENOFIBRATE [Concomitant]

REACTIONS (5)
  - ARRHYTHMIA [None]
  - EXTRASYSTOLES [None]
  - MALAISE [None]
  - RESPIRATORY DISORDER [None]
  - VENTRICULAR EXTRASYSTOLES [None]
